FAERS Safety Report 6794579-2 (Version None)
Quarter: 2010Q2

REPORT INFORMATION
  Report Type: 
  Country: None (occurrence: None)
  Receive Date: 20100625
  Receipt Date: 20100612
  Transmission Date: 20101027
  Serious: Yes (Hospitalization)
  Sender: FDA-Public Use
  Company Number: RU-ELI_LILLY_AND_COMPANY-RU201003000364

PATIENT
  Age: 55 Year
  Sex: Male

DRUGS (8)
  1. BYETTA [Suspect]
     Indication: TYPE 2 DIABETES MELLITUS
     Dosage: 5 UG, UNKNOWN
     Route: 058
     Dates: start: 20081009, end: 20081108
  2. BYETTA [Suspect]
     Dosage: 10 UG, 2/D
     Route: 058
     Dates: start: 20081109
  3. BYETTA [Suspect]
     Dosage: UNK, UNKNOWN
     Route: 058
     Dates: start: 20100201
  4. GLUCOPHAGE [Concomitant]
     Indication: TYPE 2 DIABETES MELLITUS
     Dosage: 2.5 (UNITS UNSPECIFIED)
     Route: 065
  5. AMARYL [Concomitant]
     Indication: TYPE 2 DIABETES MELLITUS
     Dosage: 3 TABLETS, UNKNOWN
     Route: 048
  6. DIABETONE [Concomitant]
     Dosage: 80 MG, OTHER (0.5 OF TABLET)
     Route: 065
     Dates: start: 20050501
  7. METFORMIN HCL [Concomitant]
     Dosage: UNK, UNKNOWN
     Route: 065
  8. ACC                                /00082801/ [Concomitant]
     Dosage: UNK, UNKNOWN
     Route: 065

REACTIONS (2)
  - GOITRE [None]
  - THYROID CANCER [None]
